FAERS Safety Report 12729930 (Version 1)
Quarter: 2016Q3

REPORT INFORMATION
  Report Type: Spontaneous
  Country: JP (occurrence: JP)
  Receive Date: 20160909
  Receipt Date: 20160909
  Transmission Date: 20161109
  Serious: Yes (Other)
  Sender: FDA-Public Use
  Company Number: JP-TEVA-685273ISR

PATIENT
  Age: 78 Year
  Sex: Female

DRUGS (2)
  1. ELCITONIN [Concomitant]
     Active Substance: ELCATONIN
     Dates: start: 2011
  2. ACTONEL [Suspect]
     Active Substance: RISEDRONATE SODIUM
     Indication: RHEUMATOID ARTHRITIS
     Route: 048
     Dates: start: 200901

REACTIONS (6)
  - Osteonecrosis of jaw [Recovered/Resolved]
  - Osteitis [Recovered/Resolved]
  - Periodontal disease [Recovered/Resolved]
  - Tooth abscess [Recovered/Resolved]
  - Swelling face [Recovered/Resolved]
  - Trismus [Recovered/Resolved]
